FAERS Safety Report 8068272-2 (Version None)
Quarter: 2012Q1

REPORT INFORMATION
  Report Type: 
  Country: None (occurrence: None)
  Receive Date: 20120124
  Receipt Date: 20111006
  Transmission Date: 20120608
  Serious: No
  Sender: FDA-Public Use
  Company Number: US-AMGEN-USASP2011051638

PATIENT
  Age: 76 Year
  Sex: Female

DRUGS (12)
  1. VITAMIN D [Concomitant]
     Dosage: 300000 IU, QMO
  2. ZOCOR [Concomitant]
     Dosage: 5 MG, UNK
  3. SYNTHROID [Concomitant]
     Dosage: UNK
  4. ASCORBIC ACID [Concomitant]
     Dosage: UNK
  5. LEXAPRO [Concomitant]
  6. AMBIEN [Concomitant]
  7. PREDNISONE [Concomitant]
     Dates: start: 20110101, end: 20110101
  8. PROLIA [Suspect]
     Indication: OSTEOPOROSIS POSTMENOPAUSAL
     Dosage: 60 MG, Q6MO
     Dates: start: 20110401
  9. CALCIUM PLUS VITAMIN D [Concomitant]
     Dosage: 2000 MG, UNK
  10. CELEBREX [Concomitant]
  11. ONE A DAY [Concomitant]
     Dosage: UNK
  12. VIMOVO [Concomitant]
     Dates: end: 20110101

REACTIONS (5)
  - HIP FRACTURE [None]
  - VITAMIN D ABNORMAL [None]
  - BLOOD CALCIUM ABNORMAL [None]
  - FEMUR FRACTURE [None]
  - FALL [None]
